FAERS Safety Report 6662088-7 (Version None)
Quarter: 2010Q1

REPORT INFORMATION
  Report Type: 
  Country: None (occurrence: None)
  Receive Date: 20100331
  Receipt Date: 20100324
  Transmission Date: 20100710
  Serious: Yes (Death, Hospitalization)
  Sender: FDA-Public Use
  Company Number: CN-ELI_LILLY_AND_COMPANY-CN201002002556

PATIENT
  Sex: Female
  Weight: 58 kg

DRUGS (4)
  1. PEMETREXED [Suspect]
     Indication: NON-SMALL CELL LUNG CANCER
     Dosage: 500 MG/M2, OTHER
     Route: 042
     Dates: start: 20100129, end: 20100208
  2. FOLIC ACID [Concomitant]
     Indication: PROPHYLAXIS
     Dosage: 400 UG, DAILY (1/D)
     Route: 048
     Dates: start: 20100119
  3. VITAMIN B-12 [Concomitant]
     Indication: PROPHYLAXIS
     Dosage: 1 MG, OTHER
     Route: 030
     Dates: start: 20100126, end: 20100126
  4. DEXAMETHASONE [Concomitant]
     Indication: PROPHYLAXIS
     Dosage: 4 MG, 2/D
     Route: 048
     Dates: start: 20100128, end: 20100130

REACTIONS (2)
  - BONE MARROW FAILURE [None]
  - MALIGNANT NEOPLASM PROGRESSION [None]
